FAERS Safety Report 11827615 (Version 1)
Quarter: 2015Q4

REPORT INFORMATION
  Report Type: Spontaneous
  Country: US (occurrence: US)
  Receive Date: 20151211
  Receipt Date: 20151211
  Transmission Date: 20160305
  Serious: No
  Sender: FDA-Public Use
  Company Number: US-WATSON-2015-16899

PATIENT
  Age: 27 Year
  Sex: Female
  Weight: 117.1 kg

DRUGS (2)
  1. LILETTA [Suspect]
     Active Substance: LEVONORGESTREL
     Indication: CONTRACEPTION
     Dosage: UNK UNK, UNKNOWN
     Route: 015
     Dates: start: 20150807, end: 20150807
  2. LILETTA [Suspect]
     Active Substance: LEVONORGESTREL
     Dosage: UNK
     Route: 015
     Dates: start: 20150825

REACTIONS (2)
  - Uterine spasm [Not Recovered/Not Resolved]
  - Device expulsion [Unknown]

NARRATIVE: CASE EVENT DATE: 20150807
